FAERS Safety Report 8793112 (Version 1)
Quarter: 2012Q4

REPORT INFORMATION
  Report Type: 
  Country: US (occurrence: US)
  Receive Date: 20120917
  Receipt Date: 20120917
  Transmission Date: 20130627
  Serious: No
  Sender: FDA-Public Use
  Company Number: US-PFIZER INC-2012228347

PATIENT
  Age: 72 Year
  Sex: Female
  Weight: 50.8 kg

DRUGS (2)
  1. PREPARATION H [Suspect]
     Indication: HAEMORRHOIDS
     Dosage: UNK, 3x/day
     Dates: start: 201208, end: 201209
  2. LIPITOR [Suspect]
     Indication: BLOOD CHOLESTEROL ABNORMAL
     Dosage: 20 mg, daily

REACTIONS (3)
  - Blood cholesterol increased [Unknown]
  - Back pain [Not Recovered/Not Resolved]
  - Blood glucose abnormal [Unknown]
